FAERS Safety Report 9371674 (Version 1)
Quarter: 2013Q2

REPORT INFORMATION
  Report Type: Spontaneous
  Country: US (occurrence: None)
  Receive Date: 20130626
  Receipt Date: 20130626
  Transmission Date: 20140414
  Serious: No
  Sender: FDA-Public Use
  Company Number: None

PATIENT
  Age: 75 Year
  Sex: Male

DRUGS (1)
  1. JAKAFI 10MG INCYTE [Suspect]
     Indication: MYELOFIBROSIS
     Route: 048
     Dates: start: 20120701

REACTIONS (2)
  - Atrial flutter [None]
  - Heart rate irregular [None]
